FAERS Safety Report 12041859 (Version 3)
Quarter: 2016Q1

REPORT INFORMATION
  Report Type: Spontaneous
  Country: BR (occurrence: BR)
  Receive Date: 20160208
  Receipt Date: 20160314
  Transmission Date: 20160526
  Serious: Yes (Other)
  Sender: FDA-Public Use
  Company Number: CHPA2016BR001495

PATIENT
  Sex: Male
  Weight: 89 kg

DRUGS (3)
  1. OTRIVINA [Suspect]
     Active Substance: XYLOMETAZOLINE
     Indication: NASAL CONGESTION
     Dosage: 1 TUBE A DAY
     Route: 045
  2. OTRIVINA [Suspect]
     Active Substance: XYLOMETAZOLINE
     Indication: NASAL CONGESTION
     Dosage: UNK
     Route: 045
  3. NARIDRIN [Concomitant]
     Indication: PRODUCT USED FOR UNKNOWN INDICATION
     Dosage: UNK
     Route: 065

REACTIONS (13)
  - Sinusitis [Unknown]
  - Drug ineffective [Unknown]
  - Malaise [Unknown]
  - Incorrect dose administered [Unknown]
  - Diabetes mellitus [Unknown]
  - Enzyme abnormality [Unknown]
  - Renal impairment [Unknown]
  - Rhinitis [Unknown]
  - Feeling abnormal [Unknown]
  - Nasal congestion [Unknown]
  - Drug dependence [Unknown]
  - Incorrect drug administration duration [Unknown]
  - Hypertension [Recovering/Resolving]

NARRATIVE: CASE EVENT DATE: 2006
